FAERS Safety Report 4325876-8 (Version None)
Quarter: 2004Q1

REPORT INFORMATION
  Report Type: 
  Country: None (occurrence: None)
  Receive Date: 20040323
  Receipt Date: 20040311
  Transmission Date: 20041129
  Serious: Yes (Hospitalization, Other)
  Sender: FDA-Public Use
  Company Number: US-JNJFOC-20031002780

PATIENT
  Age: 57 Year
  Sex: Male
  Weight: 86.1834 kg

DRUGS (11)
  1. REMICADE [Suspect]
     Indication: CROHN'S DISEASE
     Dosage: , 1 IN 1 DAY, INTRAVENOUS
     Route: 042
     Dates: start: 20000719
  2. CELEBREX [Suspect]
  3. AZATHIOPRINE [Suspect]
  4. NEXIUM (ESOMAPRAZOLE) [Concomitant]
  5. FOLIC ACID [Concomitant]
  6. QUESTRAN [Concomitant]
  7. HCTX (HYDROCHLOROTHIAZIDE) [Concomitant]
  8. ZOCOR [Concomitant]
  9. TYLENOL [Concomitant]
  10. IMMODIUM (LOPERAMIDE HYDROCHLORIDE) [Concomitant]
  11. PREDNISONE [Concomitant]

REACTIONS (36)
  - ADRENAL INSUFFICIENCY [None]
  - ANAEMIA [None]
  - ANTI-HBS ANTIBODY POSITIVE [None]
  - ANTINUCLEAR ANTIBODY POSITIVE [None]
  - ARTHRITIS BACTERIAL [None]
  - BURNING SENSATION [None]
  - COLONIC POLYP [None]
  - CONDITION AGGRAVATED [None]
  - CROHN'S DISEASE [None]
  - DISSEMINATED TUBERCULOSIS [None]
  - ERYTHEMA NODOSUM [None]
  - GRANULOMA [None]
  - HAEMORRHOIDS [None]
  - HEPATIC STEATOSIS [None]
  - HYPERTENSION [None]
  - INCISION SITE HAEMORRHAGE [None]
  - LUNG DISORDER [None]
  - MASS [None]
  - METAPLASIA [None]
  - OESOPHAGEAL ULCER [None]
  - OSTEOARTHRITIS [None]
  - PANCREATITIS [None]
  - PYELONEPHRITIS [None]
  - PYREXIA [None]
  - RECTAL ULCER [None]
  - RENAL FAILURE [None]
  - RHEUMATOID ARTHRITIS [None]
  - SCOLIOSIS [None]
  - SEROMA [None]
  - SPINAL OSTEOARTHRITIS [None]
  - SPONDYLOARTHROPATHY [None]
  - STITCH ABSCESS [None]
  - STREPTOCOCCAL SEPSIS [None]
  - SUBCUTANEOUS NODULE [None]
  - VIRAL INFECTION [None]
  - WEIGHT DECREASED [None]
